FAERS Safety Report 5416850-9 (Version None)
Quarter: 2007Q3

REPORT INFORMATION
  Report Type: 
  Country: None (occurrence: None)
  Receive Date: 20070816
  Receipt Date: 20070810
  Transmission Date: 20080115
  Serious: Yes (Disabling)
  Sender: FDA-Public Use
  Company Number: US-MERCK-0706USA02479

PATIENT
  Age: 70 Year
  Sex: Female
  Weight: 117 kg

DRUGS (1)
  1. ZOCOR [Suspect]
     Route: 048

REACTIONS (2)
  - ARTHRALGIA [None]
  - CHEST PAIN [None]
